FAERS Safety Report 9466154 (Version 2)
Quarter: 2014Q1

REPORT INFORMATION
  Report Type: Spontaneous
  Country: US (occurrence: US)
  Receive Date: 20130820
  Receipt Date: 20140124
  Transmission Date: 20141002
  Serious: Yes (Hospitalization)
  Sender: FDA-Public Use
  Company Number: US-B.I. PHARMACEUTICALS,INC./RIDGEFIELD-2013-BI-25631BP

PATIENT
  Sex: Female
  Weight: 58.97 kg

DRUGS (13)
  1. PRADAXA [Suspect]
     Indication: ANTICOAGULANT THERAPY
     Dosage: 300 MG
     Dates: start: 20110803, end: 20120103
  2. PRADAXA [Suspect]
     Indication: ATRIAL FIBRILLATION
  3. LEVOTHYROXINE [Concomitant]
     Dosage: 12.5 MG
     Route: 048
  4. ADVAIR DISKUS [Concomitant]
     Indication: CHRONIC OBSTRUCTIVE PULMONARY DISEASE
  5. FOLIC ACID [Concomitant]
     Dosage: 5 MG
  6. VITAMIN B COMPLEX [Concomitant]
     Dosage: 500 MG
     Route: 048
  7. CARDIZEM [Concomitant]
     Dosage: 50 MG
     Route: 048
  8. LASIX [Concomitant]
     Dosage: 40 MG
     Route: 048
  9. POTASSIUM CHLORIDE [Concomitant]
     Dosage: 20 MEQ
     Route: 048
  10. VERAPAMIL [Concomitant]
     Dosage: 24 MG
     Route: 048
  11. SPIRIVA [Concomitant]
     Indication: CHRONIC OBSTRUCTIVE PULMONARY DISEASE
     Dosage: 2 PUF
  12. ALBUTEROL [Concomitant]
     Indication: CHRONIC OBSTRUCTIVE PULMONARY DISEASE
  13. PROTONIX [Concomitant]
     Dosage: 40 MG
     Route: 048

REACTIONS (4)
  - Lower gastrointestinal haemorrhage [Recovered/Resolved]
  - Haemorrhagic anaemia [Unknown]
  - Coagulopathy [Unknown]
  - Blood urine present [Unknown]
